FAERS Safety Report 10650905 (Version 3)
Quarter: 2015Q1

REPORT INFORMATION
  Report Type: Report from Study
  Country: JP (occurrence: JP)
  Receive Date: 20141215
  Receipt Date: 20150304
  Transmission Date: 20150720
  Serious: Yes (Death, Hospitalization)
  Sender: FDA-Public Use
  Company Number: JP-ROCHE-1505932

PATIENT
  Age: 61 Year
  Sex: Male
  Weight: 51 kg

DRUGS (12)
  1. BEVACIZUMAB [Suspect]
     Active Substance: BEVACIZUMAB
     Indication: ANAPLASTIC ASTROCYTOMA
     Route: 041
     Dates: start: 20140417, end: 20140417
  2. BEVACIZUMAB [Suspect]
     Active Substance: BEVACIZUMAB
     Indication: ANAPLASTIC ASTROCYTOMA
     Route: 041
     Dates: start: 20140724, end: 20140724
  3. PREDNISOLONE. [Concomitant]
     Active Substance: PREDNISOLONE
     Indication: ANAPLASTIC ASTROCYTOMA
     Route: 048
     Dates: start: 20140417, end: 20140908
  4. BEVACIZUMAB [Suspect]
     Active Substance: BEVACIZUMAB
     Indication: ANAPLASTIC ASTROCYTOMA
     Route: 041
     Dates: start: 20140529, end: 20140529
  5. LAXOBERON [Concomitant]
     Active Substance: SODIUM PICOSULFATE
     Dosage: HASTE
     Route: 048
     Dates: start: 20140417, end: 20140501
  6. BEVACIZUMAB [Suspect]
     Active Substance: BEVACIZUMAB
     Indication: ANAPLASTIC ASTROCYTOMA
     Route: 041
     Dates: start: 20140501, end: 20140501
  7. BEVACIZUMAB [Suspect]
     Active Substance: BEVACIZUMAB
     Indication: ANAPLASTIC ASTROCYTOMA
     Route: 041
     Dates: start: 20140515, end: 20140515
  8. BEVACIZUMAB [Suspect]
     Active Substance: BEVACIZUMAB
     Indication: ANAPLASTIC ASTROCYTOMA
     Route: 041
     Dates: start: 20140710, end: 20140710
  9. GASTER [Concomitant]
     Active Substance: FAMOTIDINE
     Indication: PROPHYLAXIS
     Route: 048
     Dates: start: 20140417, end: 20140908
  10. BEVACIZUMAB [Suspect]
     Active Substance: BEVACIZUMAB
     Indication: ANAPLASTIC ASTROCYTOMA
     Route: 041
     Dates: start: 20140612, end: 20140612
  11. BEVACIZUMAB [Suspect]
     Active Substance: BEVACIZUMAB
     Indication: ANAPLASTIC ASTROCYTOMA
     Route: 041
     Dates: start: 20140626, end: 20140626
  12. MAGLAX [Concomitant]
     Active Substance: MAGNESIUM OXIDE
     Dosage: HASTE
     Route: 048
     Dates: start: 20140417, end: 20140501

REACTIONS (7)
  - Pneumonia aspiration [Fatal]
  - Hypertension [Not Recovered/Not Resolved]
  - Seizure [Not Recovered/Not Resolved]
  - Muscle tightness [Not Recovered/Not Resolved]
  - Brain oedema [Not Recovered/Not Resolved]
  - Constipation [Not Recovered/Not Resolved]
  - Tinea pedis [Unknown]

NARRATIVE: CASE EVENT DATE: 20140612
